FAERS Safety Report 25837520 (Version 1)
Quarter: 2025Q3

REPORT INFORMATION
  Report Type: Spontaneous
  Country: CN (occurrence: CN)
  Receive Date: 20250923
  Receipt Date: 20250923
  Transmission Date: 20251021
  Serious: Yes (Death, Hospitalization, Other)
  Sender: ASTELLAS
  Company Number: CN-ASTELLAS-2025-AER-052134

PATIENT
  Age: 51 Year
  Sex: Male
  Weight: 93 kg

DRUGS (14)
  1. TACROLIMUS [Suspect]
     Active Substance: TACROLIMUS
     Indication: Liver transplant
     Route: 065
  2. MICAFUNGIN [Concomitant]
     Active Substance: MICAFUNGIN SODIUM
     Indication: Pneumonia
     Route: 065
  3. MICAFUNGIN [Concomitant]
     Active Substance: MICAFUNGIN SODIUM
     Indication: Evidence based treatment
  4. ISAVUCONAZOLE [Concomitant]
     Active Substance: ISAVUCONAZOLE
     Indication: Mucormycosis
     Route: 042
  5. ISAVUCONAZOLE [Concomitant]
     Active Substance: ISAVUCONAZOLE
     Dosage: 200 MG/DAY AFTER A 48-H LOADING DOSE OF 200 MG/8 H
     Route: 042
  6. ADEMETIONINE [Concomitant]
     Active Substance: ADEMETIONINE
     Indication: Jaundice
     Route: 042
  7. TENOFOVIR ALAFENAMIDE [Concomitant]
     Active Substance: TENOFOVIR ALAFENAMIDE
     Indication: Jaundice
     Route: 065
  8. TENOFOVIR ALAFENAMIDE [Concomitant]
     Active Substance: TENOFOVIR ALAFENAMIDE
     Indication: Antiviral treatment
  9. MEROPENEM [Concomitant]
     Active Substance: MEROPENEM
     Indication: Pneumonia
     Dosage: DE-ESCALATED ON POD 7
     Route: 065
  10. MEROPENEM [Concomitant]
     Active Substance: MEROPENEM
     Indication: Septic shock
  11. MEROPENEM [Concomitant]
     Active Substance: MEROPENEM
     Indication: Evidence based treatment
  12. VANCOMYCIN [Concomitant]
     Active Substance: VANCOMYCIN
     Indication: Pneumonia
     Dosage: DE-ESCALATED ON POD 7
     Route: 065
  13. METHYLPREDNISOLONE [Concomitant]
     Active Substance: METHYLPREDNISOLONE
     Indication: Liver transplant
     Route: 065
  14. BASILIXIMAB [Concomitant]
     Active Substance: BASILIXIMAB
     Indication: Liver transplant
     Route: 065

REACTIONS (9)
  - Disseminated mucormycosis [Fatal]
  - Endocarditis [Fatal]
  - Cardiac failure [Fatal]
  - Cardiogenic shock [Fatal]
  - Fungal infection [Fatal]
  - Fungal infection [Fatal]
  - Circulatory collapse [Fatal]
  - Cardiac disorder [Fatal]
  - Bacterial infection [Unknown]
